FAERS Safety Report 4869057-8 (Version None)
Quarter: 2005Q4

REPORT INFORMATION
  Report Type: 
  Country: None (occurrence: None)
  Receive Date: 20051223
  Receipt Date: 20051212
  Transmission Date: 20060501
  Serious: Yes (Hospitalization, Other)
  Sender: FDA-Public Use
  Company Number: 200410593BCA

PATIENT
  Age: 53 Year
  Sex: Female
  Weight: 117 kg

DRUGS (10)
  1. GAMUNEX [Suspect]
     Indication: TOXIC EPIDERMAL NECROLYSIS
     Dosage: SEE IMAGE
     Route: 042
     Dates: start: 20040713, end: 20040714
  2. GAMUNEX [Suspect]
     Indication: TOXIC EPIDERMAL NECROLYSIS
     Dosage: SEE IMAGE
     Route: 042
     Dates: start: 20040714
  3. GAMUNEX [Suspect]
     Indication: TOXIC EPIDERMAL NECROLYSIS
     Dosage: SEE IMAGE
     Route: 042
     Dates: start: 20040715
  4. GAMUNEX [Suspect]
  5. VALTREX [Concomitant]
  6. METHADONE [Concomitant]
  7. DIOVAN [Concomitant]
  8. ACTONEL [Concomitant]
  9. CAELYX [Concomitant]
  10. BIOPLEX MOUTHWASH [Concomitant]

REACTIONS (4)
  - BLOOD LACTATE DEHYDROGENASE INCREASED [None]
  - HAEMOGLOBIN DECREASED [None]
  - HAEMOLYSIS [None]
  - LABORATORY TEST ABNORMAL [None]
